FAERS Safety Report 6266616-5 (Version None)
Quarter: 2009Q3

REPORT INFORMATION
  Report Type: 
  Country: None (occurrence: None)
  Receive Date: 20090709
  Receipt Date: 20090624
  Transmission Date: 20100115
  Serious: Yes (Other)
  Sender: FDA-Public Use
  Company Number: 237034K09USA

PATIENT
  Age: 48 Year
  Sex: Female
  Weight: 127 kg

DRUGS (4)
  1. REBIF [Suspect]
     Indication: MULTIPLE SCLEROSIS
     Dosage: 44 MCG, 3 IN 1 WEEKS, SUBCUTANEOUS
     Route: 058
     Dates: start: 20071212
  2. BACLOFEN [Concomitant]
  3. NEURONTIN [Concomitant]
  4. PROZAC [Concomitant]

REACTIONS (5)
  - DIPLOPIA [None]
  - HYPERTENSION [None]
  - RETINAL VEIN OCCLUSION [None]
  - TRANSIENT ISCHAEMIC ATTACK [None]
  - VISION BLURRED [None]
